FAERS Safety Report 6096040-X (Version None)
Quarter: 2009Q1

REPORT INFORMATION
  Report Type: 
  Country: None (occurrence: None)
  Receive Date: 20090227
  Receipt Date: 20080815
  Transmission Date: 20090719
  Serious: Yes (Hospitalization, Other)
  Sender: FDA-Public Use
  Company Number: A0742860A

PATIENT
  Sex: Male

DRUGS (4)
  1. LAMICTAL [Suspect]
     Route: 048
  2. LAMOTRIGINE [Suspect]
  3. KEPPRA [Concomitant]
  4. DEPAKOTE [Concomitant]

REACTIONS (1)
  - CONVULSION [None]
